FAERS Safety Report 17925536 (Version 1)
Quarter: 2020Q2

REPORT INFORMATION
  Report Type: Spontaneous
  Country: US (occurrence: US)
  Receive Date: 20200622
  Receipt Date: 20200622
  Transmission Date: 20200714
  Serious: No
  Sender: FDA-Public Use
  Company Number: US-CELGENEUS-USA-20200605609

PATIENT
  Sex: Female
  Weight: 62.65 kg

DRUGS (2)
  1. POMALYST [Suspect]
     Active Substance: POMALIDOMIDE
     Indication: PLASMA CELL MYELOMA
  2. POMALYST [Suspect]
     Active Substance: POMALIDOMIDE
     Indication: PLASMACYTOMA
     Dosage: 4 MILLIGRAM
     Route: 048
     Dates: start: 202001

REACTIONS (1)
  - Laboratory test abnormal [Unknown]

NARRATIVE: CASE EVENT DATE: 2020
